FAERS Safety Report 6115856-4 (Version None)
Quarter: 2009Q1

REPORT INFORMATION
  Report Type: 
  Country: None (occurrence: None)
  Receive Date: 20090311
  Receipt Date: 20090226
  Transmission Date: 20090719
  Serious: No
  Sender: FDA-Public Use
  Company Number: US025537

PATIENT
  Sex: Male
  Weight: 117.9352 kg

DRUGS (4)
  1. FENTORA [Suspect]
     Indication: MIGRAINE
     Dosage: 800 UG BID PRN BUCCAL
     Route: 002
     Dates: end: 20080301
  2. OXYCONTIN [Concomitant]
  3. IMITREX /01044801/ [Concomitant]
  4. PERCOCET [Concomitant]

REACTIONS (3)
  - CONTRAINDICATION TO MEDICAL TREATMENT [None]
  - DRUG PRESCRIBING ERROR [None]
  - NO THERAPEUTIC RESPONSE [None]
